FAERS Safety Report 23860110 (Version 4)
Quarter: 2024Q4

REPORT INFORMATION
  Report Type: Spontaneous
  Country: US (occurrence: US)
  Receive Date: 20240515
  Receipt Date: 20241214
  Transmission Date: 20250114
  Serious: No
  Sender: SANOFI AVENTIS
  Company Number: US-SA-SAC20240513001431

PATIENT
  Age: 42 Year
  Sex: Female

DRUGS (1)
  1. DUPIXENT [Suspect]
     Active Substance: DUPILUMAB
     Indication: Dermatitis atopic
     Dosage: 300 MG, QOW
     Route: 058
     Dates: start: 20230823

REACTIONS (13)
  - Hyperhidrosis [Unknown]
  - Quality of life decreased [Unknown]
  - Facial pain [Unknown]
  - Pain [Unknown]
  - Insomnia [Unknown]
  - Eczema [Unknown]
  - Pruritus [Unknown]
  - Rash [Unknown]
  - Pain of skin [Unknown]
  - Dry skin [Unknown]
  - Product dose omission issue [Unknown]
  - Arthralgia [Unknown]
  - Hypersensitivity [Unknown]
